FAERS Safety Report 8902400 (Version 3)
Quarter: 2014Q1

REPORT INFORMATION
  Report Type: Report from Study
  Country: JP (occurrence: JP)
  Receive Date: 20121112
  Receipt Date: 20140321
  Transmission Date: 20141002
  Serious: Yes (Other)
  Sender: FDA-Public Use
  Company Number: JP-VERTEX PHARMACEUTICAL INC.-AE-2012-012035

PATIENT
  Age: 68 Year
  Sex: Female

DRUGS (27)
  1. VX-950 (TELAPREVIR) [Suspect]
     Indication: CHRONIC HEPATITIS C
     Dosage: 1500 MG, QD
     Route: 048
     Dates: start: 20120508, end: 20120521
  2. VX-950 (TELAPREVIR) [Suspect]
     Dosage: 750 MG, QD
     Route: 048
     Dates: start: 20120522, end: 20120716
  3. VX-950 (TELAPREVIR) [Suspect]
     Dosage: 500 MG, QD
     Route: 048
     Dates: start: 20120717, end: 20120801
  4. REBETOL [Suspect]
     Indication: CHRONIC HEPATITIS C
     Dosage: 600 MG, QD
     Route: 048
     Dates: start: 20120508, end: 20120611
  5. REBETOL [Suspect]
     Dosage: 200 MG, QD
     Route: 048
     Dates: start: 20120612, end: 20120618
  6. REBETOL [Suspect]
     Dosage: 100 MG, QD
     Route: 048
     Dates: start: 20120619, end: 20120716
  7. REBETOL [Suspect]
     Dosage: 200 MG, QD
     Route: 048
     Dates: start: 20120717, end: 20120820
  8. REBETOL [Suspect]
     Dosage: 300 MG, QD
     Route: 048
     Dates: start: 20120821
  9. PEGINTERFERON ALFA-2B [Suspect]
     Indication: CHRONIC HEPATITIS C
     Dosage: 1.5 ?G/KG, QW
     Route: 058
     Dates: start: 20120508, end: 20120515
  10. PEGINTERFERON ALFA-2B [Suspect]
     Dosage: 1.3 ?G/KG, QW
     Route: 058
     Dates: start: 20120522, end: 20120605
  11. PEGINTERFERON ALFA-2B [Suspect]
     Dosage: 0.8 ?G/KG, QW
     Route: 058
     Dates: start: 20120612, end: 20120612
  12. PEGINTERFERON ALFA-2B [Suspect]
     Dosage: 1.0 ?G/KG, QW
     Route: 058
     Dates: start: 20120619, end: 20120703
  13. PEGINTERFERON ALFA-2B [Suspect]
     Dosage: 1.2 ?G/KG, QW
     Route: 058
     Dates: start: 20120710, end: 20120717
  14. PEGINTERFERON ALFA-2B [Suspect]
     Dosage: 1.0 ?G/KG, QW
     Route: 058
     Dates: start: 20120724, end: 20120828
  15. PEGINTERFERON ALFA-2B [Suspect]
     Dosage: 1.1 ?G/KG, QW
     Route: 058
     Dates: start: 20120904, end: 20120911
  16. PEGINTERFERON ALFA-2B [Suspect]
     Dosage: 1.3 ?G/KG, QW
     Route: 058
     Dates: start: 20120918
  17. URSO [Concomitant]
     Dosage: 600 MG, QD
     Route: 048
     Dates: end: 20120523
  18. MYSER [Concomitant]
     Dosage: UNK, PRN
     Route: 061
     Dates: end: 20120605
  19. ACTOS [Concomitant]
     Dosage: 15 MG, QD
     Route: 048
  20. GLIMEPIRIDE [Concomitant]
     Dosage: 2 MG, QD
     Route: 048
  21. JANUVIA [Concomitant]
     Dosage: 50 MG, QD
     Route: 048
  22. SEIBULE [Concomitant]
     Dosage: 150 MG, QD
     Route: 048
  23. CO-DIOVAN [Concomitant]
     Dosage: 1 DF, QD
     Route: 048
     Dates: end: 20120714
  24. ALOSITOL [Concomitant]
     Dosage: 100 MG, QD
     Route: 048
     Dates: start: 20120508
  25. RESTAMIN [Concomitant]
     Dosage: UNK UNK, PRN
     Route: 061
     Dates: start: 20120511
  26. MIYA BM [Concomitant]
     Dosage: 3 G, QD
     Route: 048
     Dates: start: 20120704
  27. LOXONIN [Concomitant]
     Dosage: UNK, PRN
     Route: 061
     Dates: start: 20120918

REACTIONS (1)
  - Agranulocytosis [Unknown]
